FAERS Safety Report 4280571-9 (Version None)
Quarter: 2004Q1

REPORT INFORMATION
  Report Type: 
  Country: None (occurrence: None)
  Receive Date: 20040127
  Receipt Date: 20040114
  Transmission Date: 20041129
  Serious: Yes (Hospitalization)
  Sender: FDA-Public Use
  Company Number: 2004002724

PATIENT
  Age: 89 Year
  Sex: Female

DRUGS (5)
  1. ATARAX [Suspect]
     Indication: ILL-DEFINED DISORDER
     Dosage: 25 MG (DAILY), ORAL
     Route: 048
     Dates: start: 20031017
  2. MONTELUKAST SODIUM (MONTELUKAST SODIUM) [Suspect]
     Indication: ILL-DEFINED DISORDER
     Dosage: ORAL
     Route: 048
     Dates: start: 20031017, end: 20031031
  3. LORAZEPAM [Suspect]
     Indication: ILL-DEFINED DISORDER
     Dosage: 4 MG (DAILY), ORAL
     Route: 048
     Dates: start: 20031017
  4. MACROGOL (MACROGOL) [Suspect]
     Indication: ILL-DEFINED DISORDER
     Dosage: ORAL
     Route: 048
     Dates: start: 20031017
  5. AMBROXOL HYDROCHLORIDE (AMBROXOL HYDROCHLORIDE) [Suspect]
     Indication: ILL-DEFINED DISORDER
     Dosage: 120 MG (DAILY), ORAL
     Route: 048
     Dates: start: 20031017, end: 20031024

REACTIONS (2)
  - AGGRESSION [None]
  - CHOREA [None]
